FAERS Safety Report 18426657 (Version 1)
Quarter: 2020Q4

REPORT INFORMATION
  Report Type: Spontaneous
  Country: US (occurrence: US)
  Receive Date: 20201026
  Receipt Date: 20201026
  Transmission Date: 20210114
  Serious: No
  Sender: FDA-Public Use
  Company Number: US-GALDERMA-US2020029890

PATIENT
  Age: 32 Year
  Sex: Female

DRUGS (12)
  1. PROACTIV MD DAILY OIL CONTROL SPF 30 [Suspect]
     Active Substance: AVOBENZONE\OCTISALATE\OCTOCRYLENE
     Indication: ACNE
     Route: 061
     Dates: start: 20200422, end: 20200506
  2. PROACTIV DEEP CLEANSING WASH [Concomitant]
     Active Substance: SALICYLIC ACID
     Indication: ACNE
     Route: 061
     Dates: start: 20200422, end: 20200506
  3. PROACTIV REDNESS RELIEF SERUM [Concomitant]
     Indication: ACNE
     Route: 061
     Dates: start: 20200422, end: 20200506
  4. PROACTIV REDNESS RELIEF SERUM [Concomitant]
     Indication: SKIN HYPERPIGMENTATION
  5. PROACTIV MD DEEP CLEANSING FACE WASH [Concomitant]
     Active Substance: COSMETICS
     Indication: ACNE
     Route: 061
     Dates: start: 20200422, end: 20200506
  6. PROACTIV DEEP CLEANSING WASH [Concomitant]
     Active Substance: SALICYLIC ACID
     Indication: SKIN HYPERPIGMENTATION
  7. PROACTIV MD DEEP CLEANSING FACE WASH [Concomitant]
     Active Substance: COSMETICS
     Indication: SKIN HYPERPIGMENTATION
  8. PROACTIV MD ADAPALENE ACNE TREATMENT [Suspect]
     Active Substance: ADAPALENE
     Indication: ACNE
     Dosage: 0.1%
     Route: 061
     Dates: start: 20200422, end: 20200506
  9. PROACTIV MD ADAPALENE ACNE TREATMENT [Suspect]
     Active Substance: ADAPALENE
     Indication: SKIN HYPERPIGMENTATION
  10. PROACTIV MD DAILY OIL CONTROL SPF 30 [Suspect]
     Active Substance: AVOBENZONE\OCTISALATE\OCTOCRYLENE
     Indication: SKIN HYPERPIGMENTATION
  11. WEIGHT LOSS PILL [Concomitant]
     Indication: PRODUCT USED FOR UNKNOWN INDICATION
  12. DAILY VITAMINS [Concomitant]
     Active Substance: VITAMINS
     Indication: PRODUCT USED FOR UNKNOWN INDICATION

REACTIONS (7)
  - Skin hyperpigmentation [Recovered/Resolved]
  - Rash [Recovered/Resolved]
  - Dry skin [Recovered/Resolved]
  - Blister [Recovered/Resolved]
  - Skin burning sensation [Recovered/Resolved]
  - Skin irritation [Recovered/Resolved]
  - Acne [Recovered/Resolved]

NARRATIVE: CASE EVENT DATE: 20200425
